FAERS Safety Report 26072480 (Version 1)
Quarter: 2025Q4

REPORT INFORMATION
  Report Type: Spontaneous
  Country: US (occurrence: US)
  Receive Date: 20251120
  Receipt Date: 20251120
  Transmission Date: 20260117
  Serious: No
  Sender: GALDERMA
  Company Number: US-GALDERMA-US2025023144

PATIENT

DRUGS (1)
  1. NEMLUVIO [Suspect]
     Active Substance: NEMOLIZUMAB-ILTO
     Indication: Dermatitis atopic
     Route: 058

REACTIONS (7)
  - Skin ulcer [Unknown]
  - Dermatitis atopic [Unknown]
  - Rash macular [Unknown]
  - Skin irritation [Unknown]
  - Rash papular [Unknown]
  - Incorrect dose administered [Recovered/Resolved]
  - Device malfunction [Recovered/Resolved]
